FAERS Safety Report 5494077-2 (Version None)
Quarter: 2007Q4

REPORT INFORMATION
  Report Type: 
  Country: None (occurrence: None)
  Receive Date: 20071023
  Receipt Date: 20071011
  Transmission Date: 20080405
  Serious: Yes (Other)
  Sender: FDA-Public Use
  Company Number: JP-PFIZER INC-2007086743

PATIENT
  Age: 60 Year
  Sex: Male

DRUGS (7)
  1. DOXAZOSIN MESYLATE [Suspect]
     Indication: HYPERTENSION
     Dosage: DAILY DOSE:2MG
     Route: 048
     Dates: start: 20070927, end: 20071011
  2. MAXIPIME [Concomitant]
  3. CANDESARTAN CILEXETIL [Concomitant]
  4. PREDONINE [Concomitant]
  5. BAKTAR [Concomitant]
  6. ADETPHOS [Concomitant]
  7. DRUG, UNSPECIFIED [Concomitant]

REACTIONS (4)
  - DISSEMINATED INTRAVASCULAR COAGULATION [None]
  - DRUG INEFFECTIVE [None]
  - PLATELET COUNT DECREASED [None]
  - WHITE BLOOD CELL COUNT DECREASED [None]
